FAERS Safety Report 14405662 (Version 2)
Quarter: 2018Q1

REPORT INFORMATION
  Report Type: Spontaneous
  Country: NO (occurrence: NO)
  Receive Date: 20180118
  Receipt Date: 20180305
  Transmission Date: 20180509
  Serious: Yes (Other)
  Sender: FDA-Public Use
  Company Number: NO-ROCHE-2052983

PATIENT
  Age: 43 Year
  Sex: Female

DRUGS (7)
  1. CAPECITABINE. [Suspect]
     Active Substance: CAPECITABINE
     Indication: PRODUCT USED FOR UNKNOWN INDICATION
  2. INSULIN [Concomitant]
     Active Substance: INSULIN NOS
     Dosage: 42-50 IU DAILY, GIVEN AS FOUR BOLUS DOSES AT MEALTIMES AND ONE BASAL DOSE AT BEDTIME
     Route: 065
  3. CAPECITABINE. [Suspect]
     Active Substance: CAPECITABINE
     Indication: METASTATIC NEOPLASM
     Route: 065
  4. INSULIN [Concomitant]
     Active Substance: INSULIN NOS
     Dosage: BASAL/BOLUS REGIME OF 34 IU INSULIN DAILY
     Route: 065
  5. TEMOZOLOMIDE. [Suspect]
     Active Substance: TEMOZOLOMIDE
     Indication: METASTATIC NEOPLASM
     Route: 048
  6. INSULIN [Concomitant]
     Active Substance: INSULIN NOS
     Dosage: 28 IU DAILY
     Route: 065
  7. INSULIN [Concomitant]
     Active Substance: INSULIN NOS
     Dosage: MEALTIME BOLUS DOSES WERE GRADUALLY REDUCED TO A TOTAL OF 8 IU PER DAY
     Route: 065

REACTIONS (3)
  - Coeliac disease [Recovering/Resolving]
  - Product use in unapproved indication [Unknown]
  - Off label use [Unknown]
